FAERS Safety Report 9413546 (Version 2)
Quarter: 2013Q2

REPORT INFORMATION
  Report Type: Spontaneous
  Country: US (occurrence: None)
  Receive Date: 20130517
  Receipt Date: 20130528
  Transmission Date: 20140414
  Serious: Yes (Death)
  Sender: FDA-Public Use
  Company Number: 37732

PATIENT
  Age: 41 Year
  Sex: Male
  Weight: 60.33 kg

DRUGS (11)
  1. GLASSIA [Suspect]
     Indication: ALPHA-1 ANTI-TRYPSIN DEFICIENCY
     Dosage: 4000MG WK IV
     Route: 042
     Dates: end: 20130315
  2. CARDIZEM [Concomitant]
  3. VENTOLIN [Concomitant]
  4. SPIRIVA [Concomitant]
  5. ADVAIR DISKUS [Concomitant]
  6. DUONEB [Concomitant]
  7. ALPRAZOLAM [Concomitant]
  8. FOSAMAX [Concomitant]
  9. REMERON [Concomitant]
  10. DALIRESP [Concomitant]
  11. OXYCODONE [Concomitant]

REACTIONS (4)
  - Respiratory distress [None]
  - Pneumothorax [None]
  - Dyspnoea [None]
  - Chronic obstructive pulmonary disease [None]
